FAERS Safety Report 11779818 (Version 2)
Quarter: 2015Q4

REPORT INFORMATION
  Report Type: Spontaneous
  Country: GB (occurrence: GB)
  Receive Date: 20151125
  Receipt Date: 20151204
  Transmission Date: 20160304
  Serious: Yes (Other)
  Sender: FDA-Public Use
  Company Number: GB-WATSON-2015-25035

PATIENT
  Age: 31 Year
  Sex: Female
  Weight: 53.97 kg

DRUGS (3)
  1. FEMODENE [Concomitant]
     Indication: PRODUCT USED FOR UNKNOWN INDICATION
     Dosage: UNK
     Route: 065
  2. PREDNISOLONE (UNKNOWN) [Suspect]
     Active Substance: PREDNISOLONE
     Indication: INFLAMMATORY BOWEL DISEASE
     Dosage: 40 MG, DAILY
     Route: 048
     Dates: start: 20120301, end: 20120401
  3. OMEPRAZOLE. [Concomitant]
     Active Substance: OMEPRAZOLE
     Indication: PRODUCT USED FOR UNKNOWN INDICATION
     Dosage: UNK
     Route: 065

REACTIONS (2)
  - Deep vein thrombosis [Recovered/Resolved with Sequelae]
  - Protein C deficiency [Unknown]

NARRATIVE: CASE EVENT DATE: 20120412
